FAERS Safety Report 9258473 (Version 1)
Quarter: 2013Q1

REPORT INFORMATION
  Report Type: Spontaneous
  Country: US (occurrence: None)
  Receive Date: 20121212
  Receipt Date: 20121212
  Transmission Date: 20140127
  Serious: No
  Sender: FDA-Public Use
  Company Number: 1209USA010592

PATIENT
  Age: 57 Year
  Sex: Female

DRUGS (5)
  1. VICTRELIS [Suspect]
     Indication: HEPATITIS C
     Dosage: 4DF, Q8H
     Route: 048
     Dates: start: 20120417
  2. RIBAPAK [Suspect]
  3. METFORMIN (METFORMIN) [Concomitant]
  4. CHLORTHALIDONE (CHLORTHALIDONE ) [Concomitant]
  5. PEGASYS (PEGINTERFERON ALFA-2A) [Concomitant]

REACTIONS (1)
  - Drug ineffective [None]
